FAERS Safety Report 7200306-7 (Version None)
Quarter: 2010Q4

REPORT INFORMATION
  Report Type: 
  Country: None (occurrence: None)
  Receive Date: 20101228
  Receipt Date: 20101221
  Transmission Date: 20110411
  Serious: Yes (Hospitalization)
  Sender: FDA-Public Use
  Company Number: B0690340A

PATIENT
  Sex: Male
  Weight: 17 kg

DRUGS (4)
  1. AUGMENTIN [Suspect]
     Indication: POST PROCEDURAL PNEUMONIA
     Route: 048
     Dates: start: 20100915, end: 20100925
  2. VALPROATE SODIUM [Suspect]
     Indication: LENNOX-GASTAUT SYNDROME
     Route: 048
     Dates: start: 20080701
  3. URBANYL [Suspect]
     Indication: LENNOX-GASTAUT SYNDROME
     Dosage: 15MG PER DAY
     Route: 048
     Dates: start: 20100226
  4. RUFINAMIDE [Suspect]
     Indication: LENNOX-GASTAUT SYNDROME
     Route: 048
     Dates: start: 20100723

REACTIONS (10)
  - ANAEMIA MACROCYTIC [None]
  - COAGULATION FACTOR DECREASED [None]
  - HYPOALBUMINAEMIA [None]
  - INCREASED TENDENCY TO BRUISE [None]
  - LEUKOPENIA [None]
  - LYMPHOPENIA [None]
  - PROTHROMBIN LEVEL DECREASED [None]
  - SERUM FERRITIN DECREASED [None]
  - VITAMIN B12 INCREASED [None]
  - VITAMIN K DEFICIENCY [None]
